FAERS Safety Report 8582003-9 (Version None)
Quarter: 2012Q3

REPORT INFORMATION
  Report Type: 
  Country: None (occurrence: None)
  Receive Date: 20120809
  Receipt Date: 20120806
  Transmission Date: 20120928
  Serious: Yes (Hospitalization, Other)
  Sender: FDA-Public Use
  Company Number: US-AMGEN-USASP2012042037

PATIENT
  Age: 47 Year
  Sex: Male

DRUGS (3)
  1. EPOGEN [Suspect]
     Indication: ANAEMIA
     Dosage: UNK
  2. EPOGEN [Suspect]
     Indication: HAEMODIALYSIS
  3. EPOGEN [Suspect]
     Indication: RENAL FAILURE CHRONIC

REACTIONS (4)
  - ASTHENIA [None]
  - APLASIA PURE RED CELL [None]
  - HAEMOGLOBIN DECREASED [None]
  - HOSPITALISATION [None]
